FAERS Safety Report 12663062 (Version 2)
Quarter: 2016Q3

REPORT INFORMATION
  Report Type: Report from Study
  Country: CA (occurrence: CA)
  Receive Date: 20160818
  Receipt Date: 20160922
  Transmission Date: 20161109
  Serious: Yes (Hospitalization, Other)
  Sender: FDA-Public Use
  Company Number: CA-AMGEN-CANSL2016105267

PATIENT
  Age: 62 Year
  Sex: Female
  Weight: 70.4 kg

DRUGS (18)
  1. VITAMIN D [Concomitant]
     Active Substance: CHOLECALCIFEROL
     Dosage: UNK
  2. B100 [Concomitant]
     Active Substance: MINERALS\VITAMINS
     Dosage: UNK
  3. ESTROGEN [Concomitant]
     Active Substance: ESTRONE\SUS SCROFA OVARY
     Dosage: UNK
  4. COENZYME Q10 [Concomitant]
     Active Substance: UBIDECARENONE
     Dosage: UNK
  5. GLUCOSAMINE [Concomitant]
     Active Substance: GLUCOSAMINE
     Dosage: UNK
  6. DHEA [Concomitant]
     Active Substance: PRASTERONE
     Indication: MENOPAUSE
     Dosage: 10 MG, QD
     Dates: start: 2006, end: 201605
  7. PROGESTERONE. [Concomitant]
     Active Substance: PROGESTERONE
     Dosage: 30 MG, QD
     Dates: start: 2006, end: 201605
  8. PROLIA [Suspect]
     Active Substance: DENOSUMAB
     Indication: OSTEOPOROSIS POSTMENOPAUSAL
     Dosage: 60 MG/ML, Q6MO
     Route: 058
     Dates: start: 20150124
  9. BENADRYL [Concomitant]
     Active Substance: DIPHENHYDRAMINE HYDROCHLORIDE
     Indication: INSOMNIA
     Dosage: AS NECESSARY
  10. PROLIA [Suspect]
     Active Substance: DENOSUMAB
     Dosage: UNK
     Route: 058
  11. LIDOCAINE. [Concomitant]
     Active Substance: LIDOCAINE
     Dosage: UNK
  12. CENTRUM FORTE [Concomitant]
     Dosage: UNK
  13. MULTIVITAMIN [Concomitant]
     Active Substance: VITAMINS
     Dosage: UNK
  14. COENZYME Q10 [Concomitant]
     Active Substance: UBIDECARENONE
     Dosage: UNK
  15. TESTOSTERONE. [Concomitant]
     Active Substance: TESTOSTERONE
     Dosage: 0.5 MG, UNK
  16. VITAMIN B [Concomitant]
     Active Substance: VITAMIN B
     Dosage: UNK
  17. CYCLOPHOSPHAMIDE. [Suspect]
     Active Substance: CYCLOPHOSPHAMIDE
     Indication: PRODUCT USED FOR UNKNOWN INDICATION
     Dosage: UNK
     Route: 065
  18. CALCIUM [Concomitant]
     Active Substance: CALCIUM
     Dosage: UNK

REACTIONS (15)
  - Feeling abnormal [Unknown]
  - Nail discolouration [Unknown]
  - Dyspnoea [Unknown]
  - Fatigue [Unknown]
  - Constipation [Unknown]
  - Invasive ductal breast carcinoma [Not Recovered/Not Resolved]
  - Vomiting [Unknown]
  - Fibrocystic breast disease [Unknown]
  - Nausea [Unknown]
  - Haemorrhoids [Unknown]
  - Dry skin [Unknown]
  - Headache [Unknown]
  - Tinnitus [Unknown]
  - Dermal cyst [Unknown]
  - Flushing [Unknown]

NARRATIVE: CASE EVENT DATE: 20160518
